FAERS Safety Report 22629056 (Version 1)
Quarter: 2023Q2

REPORT INFORMATION
  Report Type: Spontaneous
  Country: US (occurrence: US)
  Receive Date: 20230622
  Receipt Date: 20230622
  Transmission Date: 20230722
  Serious: No
  Sender: FDA-Public Use
  Company Number: MIQ-03072023-911(V1)

PATIENT
  Sex: Female
  Weight: 91.61 kg

DRUGS (1)
  1. BELRAPZO [Suspect]
     Active Substance: BENDAMUSTINE HYDROCHLORIDE
     Indication: Product used for unknown indication
     Dosage: UNK
     Route: 042

REACTIONS (1)
  - Weight increased [Not Recovered/Not Resolved]
